FAERS Safety Report 25268130 (Version 1)
Quarter: 2025Q2

REPORT INFORMATION
  Report Type: Spontaneous
  Country: US (occurrence: US)
  Receive Date: 20250505
  Receipt Date: 20250505
  Transmission Date: 20250717
  Serious: Yes (Other)
  Sender: MYLAN
  Company Number: US-MYLANLABS-2025M1037077

PATIENT
  Age: 42 Year
  Sex: Female

DRUGS (9)
  1. MIDODRINE [Suspect]
     Active Substance: MIDODRINE
     Indication: Hepatorenal syndrome
  2. MIDODRINE [Suspect]
     Active Substance: MIDODRINE
     Indication: Hypovolaemia
  3. MIDODRINE [Suspect]
     Active Substance: MIDODRINE
     Indication: Renal injury
  4. OCTREOTIDE [Suspect]
     Active Substance: OCTREOTIDE
     Indication: Hepatorenal syndrome
  5. OCTREOTIDE [Suspect]
     Active Substance: OCTREOTIDE
     Indication: Hypovolaemia
  6. OCTREOTIDE [Suspect]
     Active Substance: OCTREOTIDE
     Indication: Renal injury
  7. ALBUMIN HUMAN [Suspect]
     Active Substance: ALBUMIN HUMAN
     Indication: Hepatorenal syndrome
  8. ALBUMIN HUMAN [Suspect]
     Active Substance: ALBUMIN HUMAN
     Indication: Hypovolaemia
  9. ALBUMIN HUMAN [Suspect]
     Active Substance: ALBUMIN HUMAN
     Indication: Renal injury

REACTIONS (2)
  - Treatment failure [Unknown]
  - Off label use [Unknown]
